FAERS Safety Report 12438454 (Version 2)
Quarter: 2016Q4

REPORT INFORMATION
  Report Type: Spontaneous
  Country: US (occurrence: US)
  Receive Date: 20160606
  Receipt Date: 20161108
  Transmission Date: 20170207
  Serious: No
  Sender: FDA-Public Use
  Company Number: US-GLAXOSMITHKLINE-US2016GSK079846

PATIENT
  Age: 28 Year
  Sex: Male
  Weight: 120.64 kg

DRUGS (4)
  1. LISINOPRIL. [Concomitant]
     Active Substance: LISINOPRIL
     Indication: HYPERTENSION
     Dosage: 40 MG, 1D
     Route: 048
     Dates: start: 20151214
  2. LAMICTAL [Concomitant]
     Active Substance: LAMOTRIGINE
     Indication: DEPRESSION
     Dosage: 200 MG, 1D
     Route: 048
     Dates: start: 20160323
  3. REFRESH EYE OINTMENT (CARBOXYMETHYLCELLULOSE) [Concomitant]
     Indication: PRODUCT USED FOR UNKNOWN INDICATION
  4. WELLBUTRIN XL [Suspect]
     Active Substance: BUPROPION HYDROCHLORIDE
     Indication: MAJOR DEPRESSION
     Dosage: 300 MG, QD
     Route: 048
     Dates: start: 20160513

REACTIONS (2)
  - Drug effect incomplete [Unknown]
  - Medication residue present [Unknown]

NARRATIVE: CASE EVENT DATE: 20160513
